FAERS Safety Report 10279183 (Version 1)
Quarter: 2014Q3

REPORT INFORMATION
  Report Type: Report from Study
  Country: MX (occurrence: MX)
  Receive Date: 20140707
  Receipt Date: 20140707
  Transmission Date: 20150326
  Serious: Yes (Other)
  Sender: FDA-Public Use
  Company Number: MX-ORION CORPORATION ORION PHARMA-ENTC2013-0336

PATIENT
  Age: 66 Year
  Sex: Female

DRUGS (6)
  1. STALEVO [Suspect]
     Active Substance: CARBIDOPA\ENTACAPONE\LEVODOPA
     Dosage: STRENGTH: 150/37.5/200 MG
     Route: 048
     Dates: start: 201309
  2. STALEVO [Suspect]
     Active Substance: CARBIDOPA\ENTACAPONE\LEVODOPA
     Indication: PARKINSON^S DISEASE
     Dosage: STRENGTH: 100/25/200 MG
     Route: 048
     Dates: start: 201203, end: 201309
  3. STALEVO [Suspect]
     Active Substance: CARBIDOPA\ENTACAPONE\LEVODOPA
     Dosage: STRENGTH: 200/50/200 MG
     Route: 048
  4. PARASETINA [Concomitant]
     Route: 065
  5. MELOXICAM. [Concomitant]
     Active Substance: MELOXICAM
     Route: 065
     Dates: start: 201304
  6. PK MERZ [Concomitant]
     Active Substance: AMANTADINE SULFATE
     Route: 065
     Dates: start: 201303

REACTIONS (4)
  - Feeling of despair [Not Recovered/Not Resolved]
  - Weight decreased [Recovering/Resolving]
  - Dementia Alzheimer^s type [Unknown]
  - Stress [Not Recovered/Not Resolved]
